FAERS Safety Report 4724008-1 (Version None)
Quarter: 2005Q3

REPORT INFORMATION
  Report Type: 
  Country: None (occurrence: None)
  Receive Date: 20050721
  Receipt Date: 20050712
  Transmission Date: 20060218
  Serious: Yes (Hospitalization)
  Sender: FDA-Public Use
  Company Number: US-2005-013739

PATIENT
  Age: 75 Year
  Sex: Male

DRUGS (2)
  1. FLUDARA [Suspect]
     Indication: CHRONIC LYMPHOCYTIC LEUKAEMIA
     Dosage: 6 CYCLES, INTRAVENOUS
     Route: 042
     Dates: end: 20040901
  2. RITUXAN [Suspect]
     Indication: CHRONIC LYMPHOCYTIC LEUKAEMIA
     Dosage: 6 CYCLES, INTRAVENOUS
     Route: 042
     Dates: end: 20040901

REACTIONS (3)
  - DYSPLASIA [None]
  - MYASTHENIA GRAVIS [None]
  - PANCREATITIS [None]
